FAERS Safety Report 16615030 (Version 1)
Quarter: 2019Q3

REPORT INFORMATION
  Report Type: Spontaneous
  Country: US (occurrence: US)
  Receive Date: 20190610
  Receipt Date: 20190610
  Transmission Date: 20191004
  Serious: No
  Sender: FDA-Public Use
  Company Number: None

PATIENT
  Age: 70 Year
  Sex: Female

DRUGS (1)
  1. MYCOPHENOLATE ++ 250MG [Suspect]
     Active Substance: MYCOPHENOLIC ACID
     Indication: RENAL TRANSPLANT
     Route: 048
     Dates: start: 20161123

REACTIONS (4)
  - Emotional disorder [None]
  - Agitation [None]
  - Feeling abnormal [None]
  - Stress [None]

NARRATIVE: CASE EVENT DATE: 20190430
